FAERS Safety Report 11030946 (Version 2)
Quarter: 2015Q2

REPORT INFORMATION
  Report Type: Spontaneous
  Country: US (occurrence: US)
  Receive Date: 20150415
  Receipt Date: 20150427
  Transmission Date: 20150821
  Serious: Yes (Hospitalization)
  Sender: FDA-Public Use
  Company Number: US-BAYER-2015-135217

PATIENT
  Age: 68 Year
  Sex: Male

DRUGS (1)
  1. MIRALAX [Suspect]
     Active Substance: POLYETHYLENE GLYCOL 3350

REACTIONS (5)
  - Wrong drug administered [None]
  - Oesophageal injury [Recovering/Resolving]
  - Odynophagia [Recovering/Resolving]
  - Oropharyngeal plaque [None]
  - Pharyngeal lesion [None]
